FAERS Safety Report 8904003 (Version 1)
Quarter: 2012Q4

REPORT INFORMATION
  Report Type: 
  Country: IT (occurrence: IT)
  Receive Date: 20121112
  Receipt Date: 20121112
  Transmission Date: 20130627
  Serious: Yes (Hospitalization)
  Sender: FDA-Public Use
  Company Number: IT-MYLANLABS-2012S1022627

PATIENT
  Age: 81 Year
  Sex: Female

DRUGS (5)
  1. GLYCERYL TRINITRATE [Suspect]
     Indication: ANGINA PECTORIS
     Route: 062
     Dates: start: 20110101, end: 20111013
  2. TRIATEC [Suspect]
     Indication: HYPERTENSION
     Route: 048
     Dates: start: 20110101, end: 20121013
  3. CARDIOASPIRIN [Concomitant]
     Indication: PRODUCT USED FOR UNKNOWN INDICATION
  4. EUTIROX [Concomitant]
     Indication: PRODUCT USED FOR UNKNOWN INDICATION
  5. DEPAKIN [Concomitant]
     Indication: PRODUCT USED FOR UNKNOWN INDICATION

REACTIONS (2)
  - Hyperhidrosis [Unknown]
  - Presyncope [Unknown]
